FAERS Safety Report 7556273-X (Version None)
Quarter: 2011Q2

REPORT INFORMATION
  Report Type: 
  Country: None (occurrence: None)
  Receive Date: 20110620
  Receipt Date: 20110613
  Transmission Date: 20111010
  Serious: Yes (Death, Congenital Anomaly, Other)
  Sender: FDA-Public Use
  Company Number: GB-JNJFOC-20100401560

PATIENT
  Sex: Female
  Weight: 3.41 kg

DRUGS (5)
  1. ISENTRESS [Suspect]
     Indication: DRUG EXPOSURE DURING PREGNANCY
     Route: 064
     Dates: start: 20090310
  2. TRUVADA [Suspect]
     Indication: DRUG EXPOSURE DURING PREGNANCY
     Route: 064
  3. DARUNAVIR ETHANOLATE [Suspect]
     Indication: DRUG EXPOSURE DURING PREGNANCY
     Route: 064
     Dates: start: 20090310
  4. ZIDOVUDINE [Suspect]
     Indication: DRUG EXPOSURE DURING PREGNANCY
     Route: 064
     Dates: start: 20090318
  5. RITONAVIR [Suspect]
     Indication: DRUG EXPOSURE DURING PREGNANCY
     Route: 064
     Dates: start: 20090310

REACTIONS (10)
  - VENTRICULAR HYPERTROPHY [None]
  - APNOEA [None]
  - CARDIAC ARREST [None]
  - PULMONARY VALVE SCLEROSIS [None]
  - NEONATAL RESPIRATORY ARREST [None]
  - AORTIC VALVE SCLEROSIS [None]
  - CARDIAC MURMUR [None]
  - SUDDEN INFANT DEATH SYNDROME [None]
  - CONGENITAL HEART VALVE DISORDER [None]
  - LARGE FOR DATES BABY [None]
